FAERS Safety Report 16729997 (Version 2)
Quarter: 2019Q3

REPORT INFORMATION
  Report Type: Spontaneous
  Country: FR (occurrence: FR)
  Receive Date: 20190822
  Receipt Date: 20190822
  Transmission Date: 20191005
  Serious: Yes (Hospitalization)
  Sender: FDA-Public Use
  Company Number: PHHY2019FR191731

PATIENT
  Age: 51 Year
  Sex: Male
  Weight: 64 kg

DRUGS (3)
  1. RAMIPRIL. [Suspect]
     Active Substance: RAMIPRIL
     Indication: POISONING DELIBERATE
     Dosage: 150 MG, TOTAL
     Route: 048
     Dates: start: 20190105, end: 20190105
  2. BISOPROLOL [Suspect]
     Active Substance: BISOPROLOL
     Indication: POISONING DELIBERATE
     Dosage: 160 MG, TOTAL
     Route: 048
     Dates: start: 20190105, end: 20190105
  3. AMLODIPINE [Suspect]
     Active Substance: AMLODIPINE BESYLATE
     Indication: POISONING DELIBERATE
     Dosage: 450 MG, TOTAL
     Route: 048
     Dates: start: 20190105, end: 20190105

REACTIONS (3)
  - Bradycardia [Recovered/Resolved]
  - Hypotension [Recovered/Resolved]
  - Bundle branch block [Recovered/Resolved]

NARRATIVE: CASE EVENT DATE: 20190105
